FAERS Safety Report 10153647 (Version 2)
Quarter: 2014Q2

REPORT INFORMATION
  Report Type: Report from Study
  Country: FR (occurrence: FR)
  Receive Date: 20140505
  Receipt Date: 20140508
  Transmission Date: 20141212
  Serious: Yes (Death, Hospitalization)
  Sender: FDA-Public Use
  Company Number: FR-BRISTOL-MYERS SQUIBB COMPANY-20675294

PATIENT
  Age: 69 Year
  Sex: Male

DRUGS (11)
  1. ONGLYZA TABS 5 MG [Suspect]
     Indication: TYPE 2 DIABETES MELLITUS
     Dosage: ONE TABLET
     Route: 048
     Dates: start: 20120705, end: 20140219
  2. STAGID [Concomitant]
     Dosage: 700MGTID
     Dates: start: 20061103, end: 20140219
  3. NOVONORM [Concomitant]
     Dosage: 2 MG TID
     Dates: start: 20061103, end: 20140219
  4. GLUCOPHAGE [Concomitant]
  5. PREVISCAN [Concomitant]
     Dates: start: 201310
  6. CRESTOR [Concomitant]
     Dates: start: 200908
  7. TRIATEC [Concomitant]
     Dates: start: 200908
  8. EFFEXOR [Concomitant]
     Dates: start: 2013
  9. SERESTA [Concomitant]
     Dates: start: 2013
  10. QUETIAPINE [Concomitant]
     Dates: start: 2013
  11. LAMICTAL [Concomitant]
     Dosage: INITIALLY?1DF=100 MG,2TABS/DAY?25MG,2TABS/DAY
     Dates: start: 2013

REACTIONS (1)
  - Pancreatic neoplasm [Fatal]
